FAERS Safety Report 8000382-8 (Version None)
Quarter: 2011Q4

REPORT INFORMATION
  Report Type: 
  Country: None (occurrence: None)
  Receive Date: 20111222
  Receipt Date: 20111213
  Transmission Date: 20120403
  Serious: Yes (Hospitalization)
  Sender: FDA-Public Use
  Company Number: US-BAYER-2011-057063

PATIENT
  Age: 26 Year
  Sex: Female
  Weight: 136 kg

DRUGS (5)
  1. HYDROCODONE BITARTRATE AND ACETAMINOPHEN [Concomitant]
  2. DROSPIRENONE AND ETHINYL ESTRADIOL [Suspect]
     Indication: CONTRACEPTION
     Dosage: UNK
     Dates: start: 20090617, end: 20090717
  3. IBUPROFEN [Concomitant]
     Dosage: UNK
     Dates: start: 20090707, end: 20090727
  4. DROSPIRENONE AND ETHINYL ESTRADIOL [Suspect]
     Dosage: UNK
     Dates: start: 20090707, end: 20090717
  5. CLINDAMYCIN [Concomitant]

REACTIONS (4)
  - OEDEMA PERIPHERAL [None]
  - COUGH [None]
  - PAIN IN EXTREMITY [None]
  - DEEP VEIN THROMBOSIS [None]
